FAERS Safety Report 6984862-X (Version None)
Quarter: 2010Q3

REPORT INFORMATION
  Report Type: 
  Country: None (occurrence: None)
  Receive Date: 20100915
  Receipt Date: 20100909
  Transmission Date: 20110219
  Serious: Yes (Other)
  Sender: FDA-Public Use
  Company Number: BR-BRISTOL-MYERS SQUIBB COMPANY-15215445

PATIENT
  Age: 30 Year
  Sex: Female

DRUGS (1)
  1. SPRYCEL [Suspect]
     Indication: LEUKAEMIA

REACTIONS (2)
  - ABORTION SPONTANEOUS [None]
  - PREGNANCY [None]
